FAERS Safety Report 23859158 (Version 1)
Quarter: 2024Q2

REPORT INFORMATION
  Report Type: Spontaneous
  Country: US (occurrence: None)
  Receive Date: 20240514
  Receipt Date: 20240514
  Transmission Date: 20240715
  Serious: Yes (unspecified)
  Sender: FDA-Public Use
  Company Number: None

PATIENT
  Age: 37 Year
  Sex: Female
  Weight: 99 kg

DRUGS (2)
  1. COSMETICS [Suspect]
     Active Substance: COSMETICS
     Indication: Hair injury
     Dates: start: 20230905, end: 20231118
  2. TACROLIMUS [Concomitant]
     Active Substance: TACROLIMUS

REACTIONS (5)
  - Dermatitis [None]
  - Allergic reaction to excipient [None]
  - Product formulation issue [None]
  - Skin texture abnormal [None]
  - Impaired healing [None]

NARRATIVE: CASE EVENT DATE: 20231006
